FAERS Safety Report 7579949-7 (Version None)
Quarter: 2011Q2

REPORT INFORMATION
  Report Type: 
  Country: None (occurrence: None)
  Receive Date: 20110629
  Receipt Date: 20110616
  Transmission Date: 20111010
  Serious: Yes (Death)
  Sender: FDA-Public Use
  Company Number: DE-JNJFOC-20110601411

PATIENT
  Age: 66 Year
  Sex: Female
  Weight: 54 kg

DRUGS (8)
  1. REMICADE [Suspect]
     Indication: RHEUMATOID ARTHRITIS
     Route: 042
     Dates: start: 20070215
  2. ADALIMUMAB [Concomitant]
     Indication: OSTEOARTHRITIS
     Dates: start: 20060901, end: 20070201
  3. OSSOFORTIN [Concomitant]
  4. NITRENDIPIN [Concomitant]
  5. SYNTESTAN [Concomitant]
  6. FOLIC ACID [Concomitant]
  7. METHOTREXATE SODIUM [Concomitant]
     Dates: start: 19950115
  8. NAPROXEN [Concomitant]

REACTIONS (1)
  - MYOCARDIAL INFARCTION [None]
